FAERS Safety Report 10004923 (Version 2)
Quarter: 2014Q2

REPORT INFORMATION
  Report Type: Report from Study
  Country: MX (occurrence: MX)
  Receive Date: 20140312
  Receipt Date: 20140415
  Transmission Date: 20141212
  Serious: Yes (Death)
  Sender: FDA-Public Use
  Company Number: PHHY2014MX029671

PATIENT
  Age: 88 Year
  Sex: Male
  Weight: 69 kg

DRUGS (8)
  1. EXFORGE [Suspect]
     Indication: HYPERTENSION
     Dosage: 1 DF(160/5MG), DAILY
     Route: 048
     Dates: start: 201105
  2. TENORMIN [Concomitant]
     Dosage: 1 DF, DAILY
     Route: 048
  3. ADALAT [Concomitant]
     Indication: BLOOD PRESSURE ABNORMAL
     Dosage: 1 DF, DAILY
     Route: 048
  4. MINIPRESS [Concomitant]
     Indication: BLOOD PRESSURE ABNORMAL
     Dosage: 3 DF, DAILY
     Route: 048
  5. ASPIRIN PROTECT [Concomitant]
     Dosage: 1 DF, DAILY
     Route: 048
  6. ATISURIL//ALLOPURINOL [Concomitant]
     Dosage: 1 DF, DAILY
     Route: 048
  7. CALCIUM [Concomitant]
     Indication: CALCIUM DEFICIENCY
     Dosage: 1 DF, DAILY
     Route: 048
  8. CRESTOR [Concomitant]
     Indication: CARDIOVASCULAR DISORDER
     Dosage: 0.5 DF, DAILY
     Route: 048

REACTIONS (6)
  - Respiratory failure [Fatal]
  - Myocardial infarction [Fatal]
  - Cardiac failure [Fatal]
  - Memory impairment [Unknown]
  - Pain in extremity [Unknown]
  - Diarrhoea [Recovered/Resolved]
